FAERS Safety Report 12263414 (Version 1)
Quarter: 2016Q2

REPORT INFORMATION
  Report Type: Spontaneous
  Country: AU (occurrence: AU)
  Receive Date: 20160413
  Receipt Date: 20160413
  Transmission Date: 20160815
  Serious: Yes (Other)
  Sender: FDA-Public Use
  Company Number: AU-JNJFOC-20160406092

PATIENT

DRUGS (4)
  1. DOXORUBICIN HYDROCHLORIDE. [Suspect]
     Active Substance: DOXORUBICIN HYDROCHLORIDE
     Indication: HODGKIN^S DISEASE
     Route: 065
  2. BLEOMYCIN [Suspect]
     Active Substance: BLEOMYCIN SULFATE
     Indication: HODGKIN^S DISEASE
     Route: 065
  3. VINBLASTINE [Suspect]
     Active Substance: VINBLASTINE
     Indication: HODGKIN^S DISEASE
     Route: 065
  4. DACARBAZINE. [Suspect]
     Active Substance: DACARBAZINE
     Indication: HODGKIN^S DISEASE
     Route: 065

REACTIONS (11)
  - Nausea [Unknown]
  - Vomiting [Unknown]
  - Infection [Unknown]
  - Stomatitis [Unknown]
  - Neuropathy peripheral [Unknown]
  - Neutropenia [Unknown]
  - Pulmonary toxicity [Unknown]
  - Anaemia [Unknown]
  - Renal impairment [Unknown]
  - Febrile neutropenia [Unknown]
  - Thrombocytopenia [Unknown]
